FAERS Safety Report 10357565 (Version 1)
Quarter: 2014Q3

REPORT INFORMATION
  Report Type: Spontaneous
  Country: US (occurrence: US)
  Receive Date: 20140801
  Receipt Date: 20140801
  Transmission Date: 20150326
  Serious: No
  Sender: FDA-Public Use
  Company Number: US-BAXTER-2014BAX040669

PATIENT
  Age: 58 Year
  Sex: Female
  Weight: 63.56 kg

DRUGS (2)
  1. ARTISS [Suspect]
     Active Substance: FIBRINOGEN HUMAN\THROMBIN HUMAN
     Indication: FACE LIFT
     Route: 065
     Dates: start: 20140711, end: 20140711
  2. PREDNISONE. [Concomitant]
     Active Substance: PREDNISONE
     Indication: CONGENITAL ADRENAL GLAND HYPOPLASIA
     Route: 065

REACTIONS (3)
  - Rash macular [Recovering/Resolving]
  - Incision site vesicles [Recovering/Resolving]
  - Pruritus [Recovering/Resolving]

NARRATIVE: CASE EVENT DATE: 20140712
